FAERS Safety Report 9767178 (Version 2)
Quarter: 2015Q1

REPORT INFORMATION
  Report Type: Spontaneous
  Country: US (occurrence: US)
  Receive Date: 20131217
  Receipt Date: 20150126
  Transmission Date: 20150721
  Serious: No
  Sender: FDA-Public Use
  Company Number: US-GLAXOSMITHKLINE-A1042337A

PATIENT
  Age: 75 Year
  Sex: Female

DRUGS (2)
  1. VOTRIENT [Suspect]
     Active Substance: PAZOPANIB HYDROCHLORIDE
     Dosage: 120 MG, U
  2. VOTRIENT [Suspect]
     Active Substance: PAZOPANIB HYDROCHLORIDE
     Indication: RENAL CANCER
     Dosage: VOTRIENT WAS PUT ON HOLD AND THEN BACK TO 800 MG DAILY
     Route: 048
     Dates: start: 20130730

REACTIONS (3)
  - Blood pressure increased [Recovered/Resolved]
  - Surgery [Unknown]
  - Wound closure [Unknown]

NARRATIVE: CASE EVENT DATE: 20130804
